FAERS Safety Report 17824087 (Version 1)
Quarter: 2020Q2

REPORT INFORMATION
  Report Type: Spontaneous
  Country: US (occurrence: US)
  Receive Date: 20200526
  Receipt Date: 20200526
  Transmission Date: 20200714
  Serious: Yes (Hospitalization, Other)
  Sender: FDA-Public Use
  Company Number: None

PATIENT
  Age: 80 Year
  Sex: Female
  Weight: 77 kg

DRUGS (1)
  1. REMDESIVIR. [Suspect]
     Active Substance: REMDESIVIR
     Indication: COVID-19
     Dates: start: 20200522, end: 20200526

REACTIONS (7)
  - Clinical trial participant [None]
  - Respiratory disorder [None]
  - COVID-19 pneumonia [None]
  - Condition aggravated [None]
  - Product use in unapproved indication [None]
  - Burning sensation [None]
  - Acute kidney injury [None]

NARRATIVE: CASE EVENT DATE: 20200526
